FAERS Safety Report 9570862 (Version 1)
Quarter: 2013Q3

REPORT INFORMATION
  Report Type: Spontaneous
  Country: US (occurrence: None)
  Receive Date: 20130927
  Receipt Date: 20130927
  Transmission Date: 20140515
  Serious: Yes (Death, Hospitalization)
  Sender: FDA-Public Use
  Company Number: DAV-AE-MTX-13-48

PATIENT
  Age: 76 Year
  Sex: Female

DRUGS (13)
  1. METHOTREXATE [Suspect]
     Indication: RHEUMATOID ARTHRITIS
     Dosage: 15 MG ( 6 TABS/1X/WK), ORAL
     Route: 048
     Dates: end: 201307
  2. RESTORIL [Concomitant]
  3. PREDNISONE [Concomitant]
  4. XANAX [Concomitant]
  5. DURAGESIC PATCH [Concomitant]
  6. OMEPRAZOLE OTC [Concomitant]
  7. REGLAN [Concomitant]
  8. CALCIUM [Concomitant]
  9. ZOCOR [Concomitant]
  10. MOBIC [Concomitant]
  11. PERCOCET [Concomitant]
  12. FOLIC ACID [Concomitant]
  13. LIDODERM 5 % PATCH [Concomitant]

REACTIONS (5)
  - Death [None]
  - Nausea [None]
  - Vomiting [None]
  - Hypotension [None]
  - Acute myocardial infarction [None]
